FAERS Safety Report 9371030 (Version 2)
Quarter: 2014Q1

REPORT INFORMATION
  Report Type: Report from Study
  Country: US (occurrence: US)
  Receive Date: 20130627
  Receipt Date: 20140127
  Transmission Date: 20141002
  Serious: Yes (Hospitalization)
  Sender: FDA-Public Use
  Company Number: US-B.I. PHARMACEUTICALS,INC./RIDGEFIELD-2013-BI-17852BI

PATIENT
  Age: 75 Year
  Sex: Female
  Weight: 89.8 kg

DRUGS (3)
  1. DABIGATRAN [Suspect]
     Indication: ATRIAL FIBRILLATION
     Dosage: 150 MG
     Route: 048
     Dates: start: 20110310
  2. METOPROLOL [Concomitant]
     Indication: HYPERTENSION
     Dosage: 100 MG
     Route: 048
     Dates: start: 20111010
  3. LUTEIN [Concomitant]
     Indication: SUPPLEMENTATION THERAPY
     Dosage: 6 MG
     Route: 048
     Dates: start: 20100310

REACTIONS (1)
  - Diverticulitis [Recovered/Resolved]
